FAERS Safety Report 19825809 (Version 1)
Quarter: 2021Q3

REPORT INFORMATION
  Report Type: Spontaneous
  Country: CN (occurrence: CN)
  Receive Date: 20210914
  Receipt Date: 20210914
  Transmission Date: 20211014
  Serious: Yes (Other)
  Sender: FDA-Public Use
  Company Number: CN-ROCHE-2906598

PATIENT
  Age: 56 Year
  Sex: Female

DRUGS (11)
  1. XELODA [Suspect]
     Active Substance: CAPECITABINE
     Dosage: TRASTUZUMAB + CAPECITABINE
     Route: 048
     Dates: start: 20210415
  2. PACLITAXEL. [Concomitant]
     Active Substance: PACLITAXEL
     Dosage: TRASTUZUMAB + PACLITAXEL + CAPECITABINE
     Dates: start: 20210618
  3. PACLITAXEL. [Concomitant]
     Active Substance: PACLITAXEL
     Indication: INVASIVE DUCTAL BREAST CARCINOMA
     Dosage: TRASTUZUMAB + CAPECITABINE + PACLITAXEL
     Dates: start: 20210320
  4. XELODA [Suspect]
     Active Substance: CAPECITABINE
     Dosage: TRASTUZUMAB + PYROTINIB + CAPECITABINE
     Route: 048
     Dates: start: 20210824
  5. HERCEPTIN [Suspect]
     Active Substance: TRASTUZUMAB
     Dosage: TRASTUZUMAB + PYROTINIB + CAPECITABINE
     Route: 065
     Dates: start: 20210824
  6. HERCEPTIN [Suspect]
     Active Substance: TRASTUZUMAB
     Indication: INVASIVE DUCTAL BREAST CARCINOMA
     Dosage: TRASTUZUMAB + CAPECITABINE + PACLITAXEL
     Route: 065
     Dates: start: 20210320
  7. HERCEPTIN [Suspect]
     Active Substance: TRASTUZUMAB
     Dosage: TRASTUZUMAB + PACLITAXEL + CAPECITABINE
     Route: 065
     Dates: start: 20210618
  8. HERCEPTIN [Suspect]
     Active Substance: TRASTUZUMAB
     Dosage: TRASTUZUMAB + CAPECITABINE
     Route: 065
     Dates: start: 20210415
  9. XELODA [Suspect]
     Active Substance: CAPECITABINE
     Dosage: TRASTUZUMAB + PACLITAXEL + CAPECITABINE
     Route: 048
     Dates: start: 20210618
  10. XELODA [Suspect]
     Active Substance: CAPECITABINE
     Indication: INVASIVE DUCTAL BREAST CARCINOMA
     Dosage: TRASTUZUMAB + CAPECITABINE + PACLITAXEL
     Route: 048
     Dates: start: 20210320
  11. PYROTINIB [Concomitant]
     Active Substance: PYROTINIB
     Indication: INVASIVE DUCTAL BREAST CARCINOMA
     Dosage: TRASTUZUMAB + PYROTINIB + CAPECITABINE
     Dates: start: 20210824

REACTIONS (2)
  - Platelet count decreased [Recovered/Resolved]
  - Catheter site haematoma [Unknown]
